FAERS Safety Report 8807350 (Version 1)
Quarter: 2012Q4

REPORT INFORMATION
  Report Type: 
  Country: FR (occurrence: FR)
  Receive Date: 20120925
  Receipt Date: 20120925
  Transmission Date: 20130627
  Serious: Yes (Other)
  Sender: FDA-Public Use
  Company Number: FR-TEVA-358680ISR

PATIENT
  Sex: Male

DRUGS (7)
  1. ACTIQ [Suspect]
     Indication: NEURALGIA
     Dosage: 7200 Microgram Daily; 6 lozenges per day
     Route: 048
     Dates: start: 2010
  2. SKENAN 200 MG (NON TEVA^S PRODUCT) [Concomitant]
     Dosage: 400 Milligram Daily; 200 mg in the morning and 200 mg in the evening
     Route: 048
  3. SULFARLEM (NON TEVA^S PRODUCT). [Concomitant]
  4. ACUPAN (NON TEVA^S PRODUCT) [Concomitant]
  5. RIVOTRIL (NON TEVA^S PRODUCT) [Concomitant]
  6. LAROXYL (NON TEVA^S PRODUCT) [Concomitant]
  7. XYLOCAINE (NON TEVA^S PRODUCT) [Concomitant]

REACTIONS (4)
  - Tooth loss [Unknown]
  - Off label use [Unknown]
  - Intentional overdose [Unknown]
  - Dry mouth [Unknown]
